FAERS Safety Report 4811588-0 (Version None)
Quarter: 2005Q4

REPORT INFORMATION
  Report Type: 
  Country: None (occurrence: None)
  Receive Date: 20051027
  Receipt Date: 20050908
  Transmission Date: 20060501
  Serious: Yes (Hospitalization)
  Sender: FDA-Public Use
  Company Number: US-MERCK-0509USA01035

PATIENT
  Age: 70 Year
  Sex: Male

DRUGS (7)
  1. VIOXX [Suspect]
     Indication: SPONDYLITIS
     Route: 048
     Dates: start: 20011101, end: 20030223
  2. VIOXX [Suspect]
     Route: 048
     Dates: start: 19990101, end: 20020501
  3. VIOXX [Suspect]
     Indication: PAIN
     Route: 048
     Dates: start: 20011101, end: 20030223
  4. VIOXX [Suspect]
     Route: 048
     Dates: start: 19990101, end: 20020501
  5. MAXZIDE [Concomitant]
     Route: 065
  6. VICODIN [Concomitant]
     Route: 065
  7. ADVAIR DISKUS 100/50 [Concomitant]
     Route: 055

REACTIONS (12)
  - ANGINA PECTORIS [None]
  - CALCULUS URETERIC [None]
  - CORONARY ARTERY DISEASE [None]
  - DEHYDRATION [None]
  - DYSPNOEA [None]
  - HYPOAESTHESIA [None]
  - MYALGIA [None]
  - MYOCARDIAL INFARCTION [None]
  - OEDEMA PERIPHERAL [None]
  - RENAL COLIC [None]
  - RENAL FAILURE [None]
  - RENAL FAILURE ACUTE [None]
